FAERS Safety Report 8905810 (Version 3)
Quarter: 2013Q1

REPORT INFORMATION
  Report Type: Spontaneous
  Country: JP (occurrence: JP)
  Receive Date: 20121113
  Receipt Date: 20130112
  Transmission Date: 20140127
  Serious: Yes (Other)
  Sender: FDA-Public Use
  Company Number: JP-TEVA-368883USA

PATIENT
  Age: 66 Year
  Sex: Male

DRUGS (11)
  1. TREANDA [Suspect]
     Indication: MANTLE CELL LYMPHOMA
     Dosage: 90 MG/M2, CYCLIC
     Route: 042
     Dates: start: 20120703, end: 20120704
  2. TREANDA [Suspect]
     Dosage: 90 MG/M2, CYCLIC
     Route: 042
     Dates: start: 20120808, end: 20120809
  3. TREANDA [Suspect]
     Dosage: 90 MG/M2, CYCLIC
     Route: 042
     Dates: start: 20120905
  4. SULFAMETHOXAZOLE W/TRIMETHOPRIM [Suspect]
     Indication: PROPHYLAXIS
     Dosage: 1 DF
     Route: 048
     Dates: start: 201207
  5. VALACICLOVIR HYDROCHLORIDE [Suspect]
     Indication: PROPHYLAXIS
     Route: 048
     Dates: start: 201207
  6. RITUXIMAB [Concomitant]
     Dates: start: 20120702
  7. WARFARIN POTASSIUM [Concomitant]
  8. CARVEDILOL [Concomitant]
  9. TAMSULOSIN HYDROCHLORIDE [Concomitant]
  10. LANSOPRAZOLE [Concomitant]
  11. ALLOPURINOL [Concomitant]

REACTIONS (1)
  - Pemphigoid [Recovered/Resolved]
